FAERS Safety Report 10719138 (Version 2)
Quarter: 2015Q1

REPORT INFORMATION
  Report Type: Spontaneous
  Country: US (occurrence: US)
  Receive Date: 20150119
  Receipt Date: 20150119
  Transmission Date: 20150721
  Serious: Yes (Hospitalization)
  Sender: FDA-Public Use
  Company Number: US-UNITED THERAPEUTICS-UNT-2014-001133

PATIENT
  Age: 55 Year
  Sex: Male
  Weight: 76.36 kg

DRUGS (3)
  1. ADCIRCA [Concomitant]
     Active Substance: TADALAFIL
     Indication: PRODUCT USED FOR UNKNOWN INDICATION
  2. REMODULIN [Suspect]
     Active Substance: TREPROSTINIL
     Indication: COR PULMONALE CHRONIC
     Dosage: .040 ?G/KG/MIN, CONTINUING
     Route: 058
     Dates: start: 20131011
  3. REMODULIN [Suspect]
     Active Substance: TREPROSTINIL
     Dosage: 0.040 ?G/KG, UNK
     Route: 058
     Dates: start: 20131011

REACTIONS (6)
  - Abdominal distension [Unknown]
  - Infusion site warmth [Unknown]
  - Infusion site pain [Unknown]
  - Infusion site infection [Unknown]
  - Thrombosis in device [Unknown]
  - Infusion site swelling [Unknown]

NARRATIVE: CASE EVENT DATE: 20140706
